FAERS Safety Report 8674095 (Version 2)
Quarter: 2012Q4

REPORT INFORMATION
  Report Type: Report from Study
  Country: US (occurrence: US)
  Receive Date: 20120719
  Receipt Date: 20120914
  Transmission Date: 20130627
  Serious: Yes (Hospitalization, Other)
  Sender: FDA-Public Use
  Company Number: US-ABBOTT-12P-163-0954469-00

PATIENT
  Age: 66 None
  Sex: Female
  Weight: 53.12 kg

DRUGS (15)
  1. NIASPAN (COATED) 1000MG [Suspect]
     Indication: ANGIOPLASTY
     Dosage: At bedtime
     Dates: start: 1999
  2. NIASPAN (COATED) 1000MG [Suspect]
     Indication: CORONARY ARTERIAL STENT INSERTION
  3. NIASPAN (COATED) 1000MG [Suspect]
     Indication: CATHETERISATION CARDIAC
  4. NIASPAN (COATED) 1000MG [Suspect]
     Indication: FAMILIAL RISK FACTOR
  5. NIASPAN (COATED) 1000MG [Suspect]
     Indication: LIPIDS ABNORMAL
  6. BYETTA [Suspect]
     Indication: PRODUCT USED FOR UNKNOWN INDICATION
  7. CENTRUM SILVER [Concomitant]
     Indication: PRODUCT USED FOR UNKNOWN INDICATION
  8. CALCIUM [Concomitant]
     Indication: PRODUCT USED FOR UNKNOWN INDICATION
  9. MAGNESIUM [Concomitant]
     Indication: PRODUCT USED FOR UNKNOWN INDICATION
  10. FIBER [Concomitant]
     Indication: PRODUCT USED FOR UNKNOWN INDICATION
  11. LIPITOR [Concomitant]
     Indication: PRODUCT USED FOR UNKNOWN INDICATION
  12. METFORMIN [Concomitant]
     Indication: PRODUCT USED FOR UNKNOWN INDICATION
  13. ACIPHEX [Concomitant]
     Indication: PRODUCT USED FOR UNKNOWN INDICATION
  14. CARVEDILOL [Concomitant]
     Indication: PRODUCT USED FOR UNKNOWN INDICATION
     Dosage: Half tablet
  15. KEPPRA [Concomitant]
     Indication: PRODUCT USED FOR UNKNOWN INDICATION

REACTIONS (3)
  - Subarachnoid haemorrhage [Recovered/Resolved]
  - Small intestinal obstruction [Recovered/Resolved]
  - Vomiting [Unknown]
